FAERS Safety Report 13403071 (Version 2)
Quarter: 2017Q2

REPORT INFORMATION
  Report Type: Spontaneous
  Country: US (occurrence: US)
  Receive Date: 20170404
  Receipt Date: 20170503
  Transmission Date: 20170830
  Serious: No
  Sender: FDA-Public Use
  Company Number: US-ROCHE-1882892

PATIENT
  Age: 46 Year
  Sex: Male

DRUGS (3)
  1. TECENTRIQ [Suspect]
     Active Substance: ATEZOLIZUMAB
     Indication: COLON CANCER
     Route: 065
  2. COBIMETINIB [Suspect]
     Active Substance: COBIMETINIB
     Indication: COLON CANCER
     Route: 065
  3. AVASTIN [Suspect]
     Active Substance: BEVACIZUMAB
     Indication: COLON CANCER
     Route: 065

REACTIONS (5)
  - Cytogenetic analysis abnormal [Unknown]
  - Fatigue [Unknown]
  - Enterovesical fistula [Unknown]
  - Hyponatraemia [Unknown]
  - Blood testosterone decreased [Recovering/Resolving]
